FAERS Safety Report 17799198 (Version 6)
Quarter: 2021Q2

REPORT INFORMATION
  Report Type: Spontaneous
  Country: US (occurrence: US)
  Receive Date: 20200518
  Receipt Date: 20210518
  Transmission Date: 20210716
  Serious: Yes (Other)
  Sender: FDA-Public Use
  Company Number: US-PFIZER INC-2020194349

PATIENT
  Age: 39 Year
  Sex: Male

DRUGS (6)
  1. LYRICA [Suspect]
     Active Substance: PREGABALIN
     Indication: NEUROPATHY PERIPHERAL
     Dosage: 200 MG, 2X/DAY (100MG, 2 CAPSULES/SIG: TAKE 2 CAPSULE BY MOUTH 2 TIMES DAILY)
     Route: 048
  2. LYRICA [Suspect]
     Active Substance: PREGABALIN
     Dosage: 200 MG, DAILY (P.M. [AFTER MIDDAY] MEDS/2 100MG)
     Dates: start: 201311
  3. LYRICA [Suspect]
     Active Substance: PREGABALIN
     Dosage: 200 MG, 2X/DAY (100MG, 2 CAPSULES)
  4. LYRICA [Suspect]
     Active Substance: PREGABALIN
     Dosage: 200 MG, 2X/DAY (2 100 MG CAPSULE BY MOUTH 2 TIMES DAILY)
     Route: 048
  5. LYRICA [Suspect]
     Active Substance: PREGABALIN
     Indication: NEURALGIA
     Dosage: 200 MG, DAILY (A.M. [BEFORE NOON] MEDS/2 100 MG)
     Dates: start: 201310, end: 2013
  6. LYRICA [Suspect]
     Active Substance: PREGABALIN
     Dosage: 100 MG, 2X/DAY
     Route: 048

REACTIONS (6)
  - Narcolepsy [Unknown]
  - Attention deficit hyperactivity disorder [Unknown]
  - Asthma [Unknown]
  - Epilepsy [Unknown]
  - Depression [Unknown]
  - Obsessive-compulsive disorder [Unknown]
